FAERS Safety Report 7037814-8 (Version None)
Quarter: 2010Q4

REPORT INFORMATION
  Report Type: 
  Country: None (occurrence: None)
  Receive Date: 20101011
  Receipt Date: 20101006
  Transmission Date: 20110411
  Serious: Yes (Hospitalization)
  Sender: FDA-Public Use
  Company Number: US-GILEAD-2010-0031386

PATIENT
  Sex: Female
  Weight: 74.002 kg

DRUGS (10)
  1. LETAIRIS [Suspect]
     Indication: PULMONARY ARTERIAL HYPERTENSION
     Route: 048
     Dates: start: 20090611
  2. TOBRAMYCIN [Concomitant]
  3. CIPRO [Concomitant]
  4. DILTIAZEM [Concomitant]
  5. COZAAR [Concomitant]
  6. ALDACTONE [Concomitant]
  7. REGLAN [Concomitant]
  8. LASIX [Concomitant]
  9. COUMADIN [Concomitant]
  10. NEXIUM [Concomitant]

REACTIONS (2)
  - INTERSTITIAL LUNG DISEASE [None]
  - PULMONARY ARTERIAL HYPERTENSION [None]
